FAERS Safety Report 6931879-7 (Version None)
Quarter: 2010Q3

REPORT INFORMATION
  Report Type: 
  Country: None (occurrence: None)
  Receive Date: 20100819
  Receipt Date: 20100806
  Transmission Date: 20110219
  Serious: Yes (Hospitalization)
  Sender: FDA-Public Use
  Company Number: US-ELI_LILLY_AND_COMPANY-US201008002772

PATIENT
  Sex: Male
  Weight: 51 kg

DRUGS (3)
  1. PEMETREXED [Suspect]
     Indication: NON-SMALL CELL LUNG CANCER STAGE IV
     Dosage: 500 MG/M2 ON DAY 1 EVERY 21 DAYS
     Route: 042
     Dates: start: 20090831
  2. CARBOPLATIN [Suspect]
     Indication: NON-SMALL CELL LUNG CANCER STAGE IV
     Dosage: 6 AUC ON DAY 1 EVERY 21 DAYS
     Route: 042
     Dates: start: 20090831, end: 20091102
  3. BEVACIZUMAB [Suspect]
     Indication: NON-SMALL CELL LUNG CANCER STAGE IV
     Dosage: 15 MG/KG ON DAY 1 EVERY 21 DAYS
     Route: 042
     Dates: start: 20090831

REACTIONS (2)
  - HAEMOPTYSIS [None]
  - HYPONATRAEMIA [None]
